FAERS Safety Report 13167416 (Version 8)
Quarter: 2019Q1

REPORT INFORMATION
  Report Type: Spontaneous
  Country: US (occurrence: US)
  Receive Date: 20170131
  Receipt Date: 20190115
  Transmission Date: 20190417
  Serious: Yes (Life-Threatening, Hospitalization, Other)
  Sender: FDA-Public Use
  Company Number: US-PFIZER INC-2017036227

PATIENT
  Age: 48 Year
  Sex: Female
  Weight: 66 kg

DRUGS (7)
  1. NEURONTIN [Suspect]
     Active Substance: GABAPENTIN
     Indication: IDIOPATHIC GENERALISED EPILEPSY
     Dosage: PRESCRIPTION FOR 11 A DAY ONLY TAKING 6-9 ^TABLETS^
     Route: 048
  2. LANSOPRAZOLE. [Concomitant]
     Active Substance: LANSOPRAZOLE
     Indication: OESOPHAGEAL DISORDER
     Dosage: 25 MG, 2X/DAY (ONE TABLET IN THE MORNING AND ONE AT NIGHT)
  3. NEURONTIN [Suspect]
     Active Substance: GABAPENTIN
     Indication: PARTIAL SEIZURES
     Dosage: 300 MG, (EVERY 1.5 HOURS)
     Route: 048
     Dates: start: 199604
  4. NEURONTIN [Suspect]
     Active Substance: GABAPENTIN
     Indication: NEUROPATHY PERIPHERAL
     Dosage: 4 TO 6 (300 MG CAPS) A DAY
     Route: 048
  5. NEURONTIN [Suspect]
     Active Substance: GABAPENTIN
     Indication: EPILEPSY
     Dosage: 2700 MG, DAILY (NINE 300MG CAPS DAILY)
     Route: 048
     Dates: start: 1995
  6. NEURONTIN [Suspect]
     Active Substance: GABAPENTIN
     Dosage: (5-6 CAPSULES A DAY)
  7. NEURONTIN [Suspect]
     Active Substance: GABAPENTIN
     Dosage: 9 DF, DAILY (300 MG CAPSULE NINE TIMES A DAY)
     Route: 048
     Dates: start: 20170726

REACTIONS (32)
  - Pulmonary oedema [Unknown]
  - Intentional product use issue [Unknown]
  - Speech disorder [Unknown]
  - Aphasia [Unknown]
  - Product use issue [Unknown]
  - Spinal fracture [Unknown]
  - Condition aggravated [Recovering/Resolving]
  - Withdrawal syndrome [Unknown]
  - Malaise [Unknown]
  - Condition aggravated [Not Recovered/Not Resolved]
  - Anaphylactic shock [Unknown]
  - Seizure [Unknown]
  - Nerve compression [Unknown]
  - Memory impairment [Unknown]
  - Cardiac disorder [Unknown]
  - Headache [Unknown]
  - Epilepsy [Not Recovered/Not Resolved]
  - Atrial fibrillation [Unknown]
  - Intervertebral disc protrusion [Unknown]
  - Abnormal weight gain [Unknown]
  - Feeling abnormal [Unknown]
  - Gait disturbance [Unknown]
  - Pleural effusion [Unknown]
  - Disease recurrence [Unknown]
  - Feeling jittery [Recovering/Resolving]
  - Prescribed overdose [Unknown]
  - Decreased appetite [Unknown]
  - Nausea [Unknown]
  - Systemic lupus erythematosus [Unknown]
  - Product dispensing error [Unknown]
  - Spinal disorder [Unknown]
  - Dizziness [Unknown]

NARRATIVE: CASE EVENT DATE: 199604
